FAERS Safety Report 15652163 (Version 1)
Quarter: 2018Q4

REPORT INFORMATION
  Report Type: Spontaneous
  Country: BG (occurrence: BG)
  Receive Date: 20181123
  Receipt Date: 20181123
  Transmission Date: 20190205
  Serious: Yes (Hospitalization, Other)
  Sender: FDA-Public Use
  Company Number: BG-ASTRAZENECA-2018SF54067

PATIENT
  Age: 78 Year
  Sex: Female

DRUGS (16)
  1. BRILIQUE [Concomitant]
     Active Substance: TICAGRELOR
  2. ROSUVASTATIN. [Concomitant]
     Active Substance: ROSUVASTATIN
  3. ROSUVASTATIN. [Concomitant]
     Active Substance: ROSUVASTATIN
  4. ROSUVASTATIN. [Suspect]
     Active Substance: ROSUVASTATIN
     Route: 048
  5. ISOSORBIDE DINITRATE. [Concomitant]
     Active Substance: ISOSORBIDE DINITRATE
  6. BISOPROLOL [Concomitant]
     Active Substance: BISOPROLOL
  7. CLONIDINE. [Concomitant]
     Active Substance: CLONIDINE
     Dosage: 1/2 TABLET
  8. BRILIQUE [Concomitant]
     Active Substance: TICAGRELOR
  9. LERCANIDIPINE [Concomitant]
     Active Substance: LERCANIDIPINE
  10. ACETYLSALICYLIC ACID [Concomitant]
     Active Substance: ASPIRIN
  11. PANTOPRAZOLE [Concomitant]
     Active Substance: PANTOPRAZOLE
  12. AMIODARONE [Concomitant]
     Active Substance: AMIODARONE
  13. LERCANIDIPINE [Concomitant]
     Active Substance: LERCANIDIPINE
  14. VALSARTAN/HYDROCHLOROTHIAZIDE [Concomitant]
     Active Substance: HYDROCHLOROTHIAZIDE\VALSARTAN
  15. MOXONIDINE [Concomitant]
     Active Substance: MOXONIDINE
  16. ISOSORBIDE MONONITRATE. [Concomitant]
     Active Substance: ISOSORBIDE MONONITRATE

REACTIONS (4)
  - Tachyarrhythmia [Unknown]
  - Lung infection [Recovered/Resolved]
  - Acute myocardial infarction [Unknown]
  - Myocardial ischaemia [Unknown]
